FAERS Safety Report 6132707-2 (Version None)
Quarter: 2009Q1

REPORT INFORMATION
  Report Type: 
  Country: None (occurrence: None)
  Receive Date: 20090324
  Receipt Date: 20090324
  Transmission Date: 20090719
  Serious: Yes (Hospitalization)
  Sender: FDA-Public Use
  Company Number: None

PATIENT
  Age: 53 Year
  Sex: Male
  Weight: 57.6068 kg

DRUGS (1)
  1. CHANTIX [Suspect]
     Dosage: 1MG QD PO 30-60 DAYS
     Route: 048

REACTIONS (1)
  - DELIRIUM [None]
